FAERS Safety Report 5087122-X (Version None)
Quarter: 2006Q3

REPORT INFORMATION
  Report Type: 
  Country: None (occurrence: None)
  Receive Date: 20060821
  Receipt Date: 20060808
  Transmission Date: 20061208
  Serious: Yes (Death)
  Sender: FDA-Public Use
  Company Number: 2006082218

PATIENT
  Age: 51 Year
  Sex: Male

DRUGS (1)
  1. METRONIDAZOLE [Suspect]
     Indication: PSEUDOMEMBRANOUS COLITIS
     Dosage: 1000 MG (EVERYDAY), INTRAVENOUS
     Route: 042

REACTIONS (2)
  - HEPATIC FAILURE [None]
  - RENAL FAILURE [None]
